FAERS Safety Report 17485855 (Version 1)
Quarter: 2020Q1

REPORT INFORMATION
  Report Type: Spontaneous
  Country: SK (occurrence: SK)
  Receive Date: 20200302
  Receipt Date: 20200302
  Transmission Date: 20200409
  Serious: Yes (Death)
  Sender: FDA-Public Use
  Company Number: SK-ROCHE-2559190

PATIENT
  Age: 72 Year
  Sex: Female

DRUGS (1)
  1. TECENTRIQ [Suspect]
     Active Substance: ATEZOLIZUMAB
     Indication: NON-SMALL CELL LUNG CANCER
     Route: 065

REACTIONS (3)
  - Inflammation [Fatal]
  - Ill-defined disorder [Fatal]
  - Pneumonia bacterial [Fatal]
